FAERS Safety Report 6403869-4 (Version None)
Quarter: 2009Q4

REPORT INFORMATION
  Report Type: 
  Country: None (occurrence: None)
  Receive Date: 20091016
  Receipt Date: 20091006
  Transmission Date: 20100525
  Serious: Yes (Other)
  Sender: FDA-Public Use
  Company Number: US-PFIZER INC-2009234307

PATIENT
  Sex: Male

DRUGS (4)
  1. LYRICA [Suspect]
     Indication: FIBROMYALGIA
     Dosage: 75 MG, 4X/DAY
     Route: 048
  2. LYRICA [Suspect]
     Indication: NEURALGIA
  3. NEURONTIN [Suspect]
     Indication: FIBROMYALGIA
  4. NEURONTIN [Suspect]
     Indication: NEUROPATHY PERIPHERAL

REACTIONS (1)
  - OBSESSIVE-COMPULSIVE DISORDER [None]
